FAERS Safety Report 10505160 (Version 1)
Quarter: 2014Q3

REPORT INFORMATION
  Report Type: Spontaneous
  Country: US (occurrence: None)
  Receive Date: 20140926
  Receipt Date: 20140926
  Transmission Date: 20150326
  Serious: Yes (Other)
  Sender: FDA-Public Use
  Company Number: US-MDCO-14-00087

PATIENT
  Age: 84 Year
  Sex: Male

DRUGS (1)
  1. CLEVIPREX [Suspect]
     Active Substance: CLEVIDIPINE
     Indication: MALIGNANT HYPERTENSION
     Dosage: INITIAL DOSE 1MG/ HR, MAX DOSE  16 MG/HR, INFUSION  09-NOV-2013 AT 3:45 PM - 10-NOV-2013 AT 7:37 PM
     Dates: start: 20131109, end: 20131110

REACTIONS (1)
  - Blood triglycerides increased [None]

NARRATIVE: CASE EVENT DATE: 20131110
